FAERS Safety Report 6444593-1 (Version None)
Quarter: 2009Q4

REPORT INFORMATION
  Report Type: 
  Country: None (occurrence: None)
  Receive Date: 20091118
  Receipt Date: 20091019
  Transmission Date: 20100525
  Serious: No
  Sender: FDA-Public Use
  Company Number: A0812397A

PATIENT
  Sex: Female

DRUGS (2)
  1. COREG CR [Suspect]
     Indication: HYPERTENSION
     Dosage: 20MG PER DAY
     Route: 048
  2. DYAZIDE [Suspect]
     Indication: HYPERTENSION
     Route: 048

REACTIONS (1)
  - RASH [None]
